FAERS Safety Report 22135357 (Version 1)
Quarter: 2023Q1

REPORT INFORMATION
  Report Type: Spontaneous
  Country: US (occurrence: US)
  Receive Date: 20230324
  Receipt Date: 20230324
  Transmission Date: 20230418
  Serious: No
  Sender: FDA-Public Use
  Company Number: US-SANOFI-01541695

PATIENT

DRUGS (2)
  1. DUPIXENT [Suspect]
     Active Substance: DUPILUMAB
     Dosage: UNK
  2. TEZSPIRE [Concomitant]
     Active Substance: TEZEPELUMAB-EKKO
     Dosage: UNK

REACTIONS (1)
  - Arthralgia [Unknown]
